FAERS Safety Report 14202429 (Version 2)
Quarter: 2017Q4

REPORT INFORMATION
  Report Type: Spontaneous
  Country: US (occurrence: US)
  Receive Date: 20171117
  Receipt Date: 20171122
  Transmission Date: 20180321
  Serious: No
  Sender: FDA-Public Use
  Company Number: US-LEADING PHARMA-2034552

PATIENT
  Sex: Female

DRUGS (1)
  1. BENZTROPINE MESYLATE. [Suspect]
     Active Substance: BENZTROPINE MESYLATE
     Indication: MUSCULOSKELETAL STIFFNESS
     Route: 048

REACTIONS (1)
  - Oral pain [Recovered/Resolved]
